FAERS Safety Report 12875173 (Version 2)
Quarter: 2017Q1

REPORT INFORMATION
  Report Type: Report from Study
  Country: PL (occurrence: PL)
  Receive Date: 20161024
  Receipt Date: 20170322
  Transmission Date: 20170428
  Serious: Yes (Hospitalization, Disabling, Other)
  Sender: FDA-Public Use
  Company Number: PL-BAXTER-2016BAX052717

PATIENT
  Age: 70 Year
  Sex: Male

DRUGS (44)
  1. ENDOXAN [Suspect]
     Active Substance: CYCLOPHOSPHAMIDE
     Indication: APLASIA PURE RED CELL
     Dosage: 4 CYCLES
     Route: 065
  2. RITUXIMAB [Suspect]
     Active Substance: RITUXIMAB
     Indication: APLASIA PURE RED CELL
     Dosage: 4 CYCLES
     Route: 065
  3. OBINUTUZUMAB [Suspect]
     Active Substance: OBINUTUZUMAB
     Dosage: C2D1;ACTUAL MAXIMAL INFUSION RATE: 400, LAST DOSE PRIOR TO SAE
     Route: 042
     Dates: start: 20151214, end: 20151214
  4. PARACETAMOL [Concomitant]
     Active Substance: ACETAMINOPHEN
     Route: 048
     Dates: start: 20151116, end: 20151117
  5. PARACETAMOL [Concomitant]
     Active Substance: ACETAMINOPHEN
     Dosage: SINGLE DOSE
     Route: 048
     Dates: start: 20151130, end: 20151130
  6. PARACETAMOL [Concomitant]
     Active Substance: ACETAMINOPHEN
     Dosage: SINGLE DOSE
     Route: 048
     Dates: start: 20151214, end: 20151214
  7. CIPROFLOXACIN. [Concomitant]
     Active Substance: CIPROFLOXACIN
     Indication: PRODUCT USED FOR UNKNOWN INDICATION
     Route: 048
     Dates: start: 20151227, end: 20160102
  8. OBINUTUZUMAB [Suspect]
     Active Substance: OBINUTUZUMAB
     Indication: CHRONIC LYMPHOCYTIC LEUKAEMIA
     Dosage: VIAL, C1D1;ACTUAL MAXIMAL INFUSION RATE: 12.5
     Route: 042
     Dates: start: 20151116, end: 20151116
  9. DEXAMETHASONE. [Suspect]
     Active Substance: DEXAMETHASONE
     Dosage: SINGLE DOSE
     Route: 048
     Dates: start: 20151214, end: 20151214
  10. AZITHROMYCIN ANHYDROUS. [Concomitant]
     Active Substance: AZITHROMYCIN ANHYDROUS
     Indication: PRODUCT USED FOR UNKNOWN INDICATION
     Route: 048
     Dates: start: 20160203, end: 20160205
  11. POTASSIUM [Concomitant]
     Active Substance: POTASSIUM
     Indication: PRODUCT USED FOR UNKNOWN INDICATION
     Route: 065
  12. OBINUTUZUMAB [Suspect]
     Active Substance: OBINUTUZUMAB
     Dosage: C1D8; ACTUAL MAXIMAL INFUSION RATE: 400
     Route: 042
     Dates: start: 20151123, end: 20151123
  13. CHLORAMBUCIL [Suspect]
     Active Substance: CHLORAMBUCIL
     Dosage: C2D15, LAST DOSE PRIOR TO SAE
     Route: 048
     Dates: start: 20160111, end: 20160111
  14. DEXAMETHASONE. [Suspect]
     Active Substance: DEXAMETHASONE
     Dosage: SINGLE DOSE
     Route: 042
     Dates: start: 20151123, end: 20151123
  15. CLEMASTIN [Concomitant]
     Active Substance: CLEMASTINE
     Dosage: SINGLE DOSE
     Route: 042
     Dates: start: 20151214, end: 20151214
  16. ALLOPURINOL. [Concomitant]
     Active Substance: ALLOPURINOL
     Indication: PROPHYLAXIS
     Route: 048
     Dates: start: 20151021
  17. ENCORTON [Concomitant]
     Active Substance: PREDNISONE
     Indication: PRODUCT USED FOR UNKNOWN INDICATION
     Route: 048
     Dates: start: 20160222, end: 20160303
  18. FILGRASTIM [Concomitant]
     Active Substance: FILGRASTIM
     Indication: PRODUCT USED FOR UNKNOWN INDICATION
     Route: 065
     Dates: start: 20160604, end: 20160605
  19. NADROPARINE [Concomitant]
     Active Substance: NADROPARIN
     Indication: PRODUCT USED FOR UNKNOWN INDICATION
     Route: 065
     Dates: start: 20160604, end: 20160614
  20. CHLORAMBUCIL [Suspect]
     Active Substance: CHLORAMBUCIL
     Dosage: C1D15
     Route: 048
     Dates: start: 20151130, end: 20151130
  21. CHLORAMBUCIL [Suspect]
     Active Substance: CHLORAMBUCIL
     Dosage: C2D1
     Route: 048
     Dates: start: 20151214, end: 20151214
  22. CLEMASTIN [Concomitant]
     Active Substance: CLEMASTINE
     Indication: PROPHYLAXIS
     Route: 042
     Dates: start: 20151116, end: 20151117
  23. MAGNESIUM SULFATE. [Concomitant]
     Active Substance: MAGNESIUM SULFATE
     Indication: PROPHYLAXIS
     Dosage: SINGLE DOSE
     Route: 042
     Dates: start: 20151227, end: 20160102
  24. RIVANOL [Concomitant]
     Active Substance: ETHACRIDINE LACTATE
     Indication: PRODUCT USED FOR UNKNOWN INDICATION
     Route: 065
  25. CHLORAMBUCIL [Suspect]
     Active Substance: CHLORAMBUCIL
     Indication: CHRONIC LYMPHOCYTIC LEUKAEMIA
     Dosage: C1D1
     Route: 048
     Dates: start: 20151116, end: 20151116
  26. DEXAMETHASONE. [Suspect]
     Active Substance: DEXAMETHASONE
     Route: 042
     Dates: start: 20151116, end: 20151117
  27. CLEMASTIN [Concomitant]
     Active Substance: CLEMASTINE
     Dosage: SINGLE DOSE
     Route: 042
     Dates: start: 20151123, end: 20151123
  28. ACICLOVIR [Concomitant]
     Active Substance: ACYCLOVIR
     Indication: PROPHYLAXIS
     Route: 048
     Dates: start: 20151023
  29. FUROSEMIDE. [Concomitant]
     Active Substance: FUROSEMIDE
     Route: 042
     Dates: start: 20151116, end: 20151118
  30. FUROSEMIDE. [Concomitant]
     Active Substance: FUROSEMIDE
     Dosage: SINGLE DOSE
     Route: 048
     Dates: start: 20151227, end: 20160111
  31. DEXAMETHASONE. [Suspect]
     Active Substance: DEXAMETHASONE
     Indication: APLASIA PURE RED CELL
     Dosage: SINGLE DOSE
     Route: 048
     Dates: start: 20151116, end: 20151116
  32. DEXAMETHASONE. [Suspect]
     Active Substance: DEXAMETHASONE
     Dosage: SINGLE DOSE
     Route: 042
     Dates: start: 20151130, end: 20151130
  33. CLEMASTIN [Concomitant]
     Active Substance: CLEMASTINE
     Dosage: SINGLE DOSE
     Route: 042
     Dates: start: 20151130, end: 20151130
  34. FUROSEMIDE. [Concomitant]
     Active Substance: FUROSEMIDE
     Indication: PROPHYLAXIS
     Route: 042
     Dates: start: 20151021, end: 20151028
  35. PARACETAMOL [Concomitant]
     Active Substance: ACETAMINOPHEN
     Indication: CREATININE RENAL CLEARANCE DECREASED
     Dosage: SINGLE DOSE
     Route: 042
     Dates: start: 20151025, end: 20151025
  36. PARACETAMOL [Concomitant]
     Active Substance: ACETAMINOPHEN
     Dosage: SINGLE DOSE
     Route: 048
     Dates: start: 20151123, end: 20151123
  37. OMEPRAZOLE. [Concomitant]
     Active Substance: OMEPRAZOLE
     Indication: PRODUCT USED FOR UNKNOWN INDICATION
     Route: 065
     Dates: start: 20160604, end: 20160614
  38. OBINUTUZUMAB [Suspect]
     Active Substance: OBINUTUZUMAB
     Dosage: C1D15;ACTUAL MAXIMAL INFUSION RATE: 400
     Route: 042
     Dates: start: 20151130, end: 20151130
  39. DEXAMETHASONE. [Suspect]
     Active Substance: DEXAMETHASONE
     Indication: PROPHYLAXIS
     Dosage: 4 CYCLES
     Route: 065
  40. FUROSEMIDE. [Concomitant]
     Active Substance: FUROSEMIDE
     Route: 048
     Dates: start: 20151114, end: 20151115
  41. OBINUTUZUMAB [Suspect]
     Active Substance: OBINUTUZUMAB
     Dosage: C1D2:ACTUAL MAXIMAL INFUSION RATE: 400
     Route: 042
     Dates: start: 20151117, end: 20151117
  42. TAMSULOSINI HYDROCHLORIDUM [Concomitant]
     Indication: BENIGN PROSTATIC HYPERPLASIA
     Route: 048
     Dates: start: 201206
  43. DIPYRONE [Concomitant]
     Active Substance: DIPYRONE
     Indication: PRODUCT USED FOR UNKNOWN INDICATION
     Dosage: SINGLE DOSE
     Route: 042
     Dates: start: 20151116, end: 20151116
  44. PHENYLBUTAZON [Concomitant]
     Indication: PRODUCT USED FOR UNKNOWN INDICATION
     Route: 065

REACTIONS (4)
  - Pneumonia [Recovered/Resolved]
  - Chronic lymphocytic leukaemia [Not Recovered/Not Resolved]
  - Anaemia [Not Recovered/Not Resolved]
  - Agranulocytosis [Recovered/Resolved]

NARRATIVE: CASE EVENT DATE: 201208
